FAERS Safety Report 4292320-9 (Version None)
Quarter: 2004Q1

REPORT INFORMATION
  Report Type: 
  Country: None (occurrence: None)
  Receive Date: 20040126
  Receipt Date: 20031007
  Transmission Date: 20041129
  Serious: Yes (Other)
  Sender: FDA-Public Use
  Company Number: USA030946101

PATIENT
  Age: 78 Year
  Sex: Female
  Weight: 56 kg

DRUGS (2)
  1. FORTEO [Suspect]
     Indication: OSTEOPOROSIS
     Dosage: 20 UG/IN THE MORNING
  2. NORVASC [Concomitant]

REACTIONS (3)
  - BLOOD CALCIUM INCREASED [None]
  - DIZZINESS [None]
  - MUSCLE CRAMP [None]
